FAERS Safety Report 6086730-7 (Version None)
Quarter: 2009Q1

REPORT INFORMATION
  Report Type: 
  Country: None (occurrence: None)
  Receive Date: 20090223
  Receipt Date: 20090209
  Transmission Date: 20090719
  Serious: Yes (Hospitalization, Disabling)
  Sender: FDA-Public Use
  Company Number: JP-PFIZER INC-2009167597

PATIENT

DRUGS (2)
  1. SUNITINIB MALATE [Suspect]
     Indication: RENAL CELL CARCINOMA
     Dosage: 37.5 MG, 1X/DAY
     Route: 048
     Dates: start: 20081212
  2. THYRADIN S [Concomitant]
     Route: 048
     Dates: start: 20081225

REACTIONS (2)
  - JAUNDICE [None]
  - PLATELET COUNT DECREASED [None]
